FAERS Safety Report 5034078-1 (Version None)
Quarter: 2006Q2

REPORT INFORMATION
  Report Type: 
  Country: None (occurrence: None)
  Receive Date: 20060621
  Receipt Date: 20060601
  Transmission Date: 20061013
  Serious: Yes (Disabling)
  Sender: FDA-Public Use
  Company Number: ABILS-06-0013

PATIENT
  Age: 63 Year
  Sex: Female
  Weight: 75 kg

DRUGS (5)
  1. ABRAXANE [Suspect]
     Indication: BREAST CANCER METASTATIC
     Dosage: 440 MG DAY/EVERY 3 WEEKS/11 DOSES (440 MG, EVERY 3 WEEKS), INTRAVENOUS DRIP
     Route: 041
     Dates: start: 20050511, end: 20060118
  2. PREVACID [Concomitant]
  3. POTASSIUM CHLORIDE [Concomitant]
  4. LEVOTHYROXINE SODIUM [Concomitant]
  5. COZAAR [Concomitant]

REACTIONS (3)
  - FACIAL PALSY [None]
  - HAEMOGLOBIN DECREASED [None]
  - NEUROPATHY PERIPHERAL [None]
